FAERS Safety Report 7569815-5 (Version None)
Quarter: 2011Q2

REPORT INFORMATION
  Report Type: 
  Country: None (occurrence: None)
  Receive Date: 20110624
  Receipt Date: 20110616
  Transmission Date: 20111010
  Serious: Yes (Hospitalization)
  Sender: FDA-Public Use
  Company Number: US-JNJFOC-20110401716

PATIENT
  Age: 45 Year
  Sex: Male

DRUGS (4)
  1. INVEGA SUSTENNA [Suspect]
     Route: 030
     Dates: start: 20101025, end: 20101025
  2. INVEGA SUSTENNA [Suspect]
     Indication: SCHIZOAFFECTIVE DISORDER
     Route: 030
  3. INVEGA SUSTENNA [Suspect]
     Route: 030
     Dates: start: 20101124, end: 20101124
  4. TRAZODONE HCL [Concomitant]
     Indication: ILL-DEFINED DISORDER

REACTIONS (4)
  - PNEUMONIA [None]
  - CARDIAC FLUTTER [None]
  - MUSCULOSKELETAL PAIN [None]
  - PRODUCT QUALITY ISSUE [None]
